FAERS Safety Report 7319073-1 (Version None)
Quarter: 2011Q1

REPORT INFORMATION
  Report Type: 
  Country: None (occurrence: None)
  Receive Date: 20110223
  Receipt Date: 20110223
  Transmission Date: 20110831
  Serious: No
  Sender: FDA-Public Use
  Company Number: None

PATIENT

DRUGS (1)
  1. PROPOFOL [Suspect]
     Indication: INDUCTION OF ANAESTHESIA
     Dosage: 20 ML IV
     Route: 042
     Dates: start: 20110218, end: 20110221

REACTIONS (1)
  - PRODUCT QUALITY ISSUE [None]
